FAERS Safety Report 17567813 (Version 2)
Quarter: 2020Q3

REPORT INFORMATION
  Report Type: Spontaneous
  Country: US (occurrence: US)
  Receive Date: 20200320
  Receipt Date: 20200916
  Transmission Date: 20201102
  Serious: No
  Sender: FDA-Public Use
  Company Number: US-BRISTOL-MYERS SQUIBB COMPANY-BMS-2020-023703

PATIENT
  Sex: Female

DRUGS (2)
  1. SPRYCEL [Suspect]
     Active Substance: DASATINIB
     Indication: CHRONIC MYELOID LEUKAEMIA
     Dosage: 100 MILLIGRAM, QD
     Route: 048
     Dates: start: 20160805
  2. SPRYCEL [Suspect]
     Active Substance: DASATINIB
     Dosage: 50 MILLIGRAM, QD
     Route: 048
     Dates: start: 202003

REACTIONS (2)
  - Diarrhoea [Unknown]
  - Lymphadenopathy [Unknown]
